FAERS Safety Report 12972382 (Version 1)
Quarter: 2016Q4

REPORT INFORMATION
  Report Type: Report from Study
  Country: KR (occurrence: KR)
  Receive Date: 20161124
  Receipt Date: 20161124
  Transmission Date: 20170207
  Serious: No
  Sender: FDA-Public Use
  Company Number: KR-PROSTRAKAN-2016-KR-0165

PATIENT

DRUGS (14)
  1. CIPROBAY [Concomitant]
     Active Substance: CIPROFLOXACIN
     Indication: HEPATOCELLULAR CARCINOMA
     Dosage: UNKNOWN
     Route: 065
     Dates: start: 20110607
  2. TRIDOL [Concomitant]
     Active Substance: TRAMADOL HYDROCHLORIDE
     Indication: HEPATOCELLULAR CARCINOMA
     Dosage: UNKNOWN
     Route: 065
     Dates: start: 20110610
  3. CISPLAN [Concomitant]
     Active Substance: CISPLATIN
     Indication: PRODUCT USED FOR UNKNOWN INDICATION
     Dosage: UNKNOWN
     Route: 065
     Dates: start: 20110607, end: 20110607
  4. BARACLUDE [Concomitant]
     Active Substance: ENTECAVIR
     Indication: CHRONIC HEPATITIS B
     Dosage: UNKNOWN
     Route: 065
     Dates: start: 20110606
  5. MUCOBA [Concomitant]
     Indication: HEPATIC CIRRHOSIS
     Dosage: UNKNOWN
     Route: 065
     Dates: start: 20110606
  6. GRANISETRON [Suspect]
     Active Substance: GRANISETRON
     Indication: PROPHYLAXIS OF NAUSEA AND VOMITING
     Dosage: UNKNOWN
     Route: 062
     Dates: start: 20110606, end: 20110613
  7. FLAGYL [Concomitant]
     Active Substance: METRONIDAZOLE\METRONIDAZOLE HYDROCHLORIDE
     Indication: HEPATOCELLULAR CARCINOMA
     Dosage: UNKNOWN
     Route: 065
     Dates: start: 20110608
  8. URSA [Concomitant]
     Indication: HEPATIC CIRRHOSIS
     Dosage: UNKNOWN
     Route: 065
     Dates: start: 20110606
  9. PANCRON [Concomitant]
     Indication: HEPATIC CIRRHOSIS
     Dosage: UNKNOWN
     Route: 065
     Dates: start: 20110606
  10. APETROL [Concomitant]
     Indication: HEPATIC CIRRHOSIS
     Dosage: UNKNOWN
     Route: 065
     Dates: start: 20110606
  11. VITAMEDIN [Concomitant]
     Active Substance: CYANOCOBALAMIN\PYRIDOXINE HYDROCHLORIDE\THIAMINE
     Indication: HEPATIC CIRRHOSIS
     Dosage: UNKNOWN
     Route: 065
     Dates: start: 20110606
  12. LEGALON [Concomitant]
     Active Substance: MILK THISTLE
     Indication: HEPATIC CIRRHOSIS
     Dosage: UNKNOWN
     Route: 065
     Dates: start: 20110606
  13. MYPOL [Concomitant]
     Indication: HEPATOCELLULAR CARCINOMA
     Dosage: UNKNOWN
     Route: 065
     Dates: start: 20110611
  14. H-ZYME [Concomitant]
     Indication: HEPATIC CIRRHOSIS
     Dosage: UNKNOWN
     Route: 065
     Dates: start: 20110606

REACTIONS (2)
  - Abdominal pain upper [Recovering/Resolving]
  - Pruritus generalised [Recovering/Resolving]

NARRATIVE: CASE EVENT DATE: 20110610
